FAERS Safety Report 4973472-1 (Version None)
Quarter: 2006Q2

REPORT INFORMATION
  Report Type: 
  Country: None (occurrence: None)
  Receive Date: 20060407
  Receipt Date: 20060323
  Transmission Date: 20061013
  Serious: Yes (Hospitalization, Other)
  Sender: FDA-Public Use
  Company Number: 2006039454

PATIENT
  Sex: Female

DRUGS (3)
  1. DETROL LA [Suspect]
     Indication: HYPERTONIC BLADDER
     Dosage: 4 MG (4 MG, 1 IN 1 D), ORAL
     Route: 048
  2. ALL OTHER THERAPEUTIC PRODUCTS [Concomitant]
  3. TYLENOL [Concomitant]

REACTIONS (2)
  - DRUG INEFFECTIVE [None]
  - KNEE ARTHROPLASTY [None]
